FAERS Safety Report 16392602 (Version 1)
Quarter: 2019Q2

REPORT INFORMATION
  Report Type: Spontaneous
  Country: GB (occurrence: GB)
  Receive Date: 20190605
  Receipt Date: 20190605
  Transmission Date: 20190711
  Serious: Yes (Hospitalization, Disabling)
  Sender: FDA-Public Use
  Company Number: GB-ACCORD-131155

PATIENT
  Age: 88 Year
  Sex: Female

DRUGS (15)
  1. ATORVASTATIN [Concomitant]
     Active Substance: ATORVASTATIN
  2. SIRDUPLA [Concomitant]
     Active Substance: FLUTICASONE PROPIONATE\SALMETEROL XINAFOATE
  3. ZOPICLONE [Concomitant]
     Active Substance: ZOPICLONE
     Dosage: STOPPED
  4. TRELEGY ELLIPTA [Concomitant]
     Active Substance: FLUTICASONE FUROATE\UMECLIDINIUM BROMIDE\VILANTEROL TRIFENATATE
  5. ENOXAPARIN [Concomitant]
     Active Substance: ENOXAPARIN
  6. IBANDRONIC ACID. [Concomitant]
     Active Substance: IBANDRONIC ACID
  7. LITHIUM. [Interacting]
     Active Substance: LITHIUM
     Indication: BIPOLAR DISORDER
     Route: 048
     Dates: start: 20180201, end: 20190408
  8. FELODIPINE. [Concomitant]
     Active Substance: FELODIPINE
  9. TIOTROPIUM/TIOTROPIUM BROMIDE [Concomitant]
  10. ACCRETE D3 [Concomitant]
     Active Substance: CALCIUM CARBONATE\CHOLECALCIFEROL
  11. SALBUTAMOL [Concomitant]
     Active Substance: ALBUTEROL
  12. ACETYLSALICYLIC ACID [Concomitant]
     Active Substance: ASPIRIN
  13. FUROSEMIDE. [Suspect]
     Active Substance: FUROSEMIDE
     Indication: PRODUCT USED FOR UNKNOWN INDICATION
  14. AMITRIPTYLINE [Concomitant]
     Active Substance: AMITRIPTYLINE
     Dosage: STOPPED
  15. PREGABALIN. [Concomitant]
     Active Substance: PREGABALIN

REACTIONS (9)
  - Oedema peripheral [Unknown]
  - Ataxia [Recovering/Resolving]
  - Productive cough [Unknown]
  - Past-pointing [Recovering/Resolving]
  - Toxicity to various agents [Unknown]
  - Wheezing [Unknown]
  - Confusional state [Unknown]
  - Acute kidney injury [Unknown]
  - Drug interaction [Unknown]

NARRATIVE: CASE EVENT DATE: 20190404
